FAERS Safety Report 5311002-5 (Version None)
Quarter: 2007Q2

REPORT INFORMATION
  Report Type: 
  Country: None (occurrence: None)
  Receive Date: 20070427
  Receipt Date: 20070427
  Transmission Date: 20071010
  Serious: Yes (Other)
  Sender: FDA-Public Use
  Company Number: None

PATIENT
  Sex: Male

DRUGS (4)
  1. SERTRALINE [Suspect]
     Indication: BIPOLAR DISORDER
     Dosage: 50MG PO QD
     Route: 048
     Dates: start: 20070101
  2. ADDERALL 10 [Concomitant]
  3. ABILIFY [Concomitant]
  4. ZYPREXA [Concomitant]

REACTIONS (2)
  - DRUG EFFECT DECREASED [None]
  - THERAPEUTIC RESPONSE UNEXPECTED WITH DRUG SUBSTITUTION [None]
